FAERS Safety Report 9222047 (Version 1)
Quarter: 2013Q1

REPORT INFORMATION
  Report Type: Spontaneous
  Country: US (occurrence: None)
  Receive Date: 20120907
  Receipt Date: 20120907
  Transmission Date: 20140127
  Serious: No
  Sender: FDA-Public Use
  Company Number: TH-2012-00314

PATIENT
  Sex: Female

DRUGS (1)
  1. EGRIFTA [Suspect]
     Indication: LIPODYSTROPHY ACQUIRED
     Route: 050
     Dates: start: 20120420

REACTIONS (1)
  - Pollakiuria [None]
